FAERS Safety Report 4981239-3 (Version None)
Quarter: 2006Q2

REPORT INFORMATION
  Report Type: 
  Country: None (occurrence: None)
  Receive Date: 20060418
  Receipt Date: 20060403
  Transmission Date: 20061013
  Serious: Yes (Hospitalization)
  Sender: FDA-Public Use
  Company Number: 2006-140690-NL

PATIENT
  Age: 41 Year
  Sex: Female
  Weight: 86.2 kg

DRUGS (2)
  1. NUVARING [Suspect]
     Indication: CONTRACEPTION
     Dosage: VAGINAL
     Route: 067
     Dates: start: 20060201, end: 20060306
  2. FOSAMAX [Concomitant]

REACTIONS (6)
  - CARDIAC VENTRICULAR DISORDER [None]
  - CHEST DISCOMFORT [None]
  - DYSPNOEA [None]
  - HEADACHE [None]
  - HYPERSENSITIVITY [None]
  - PALPITATIONS [None]
